FAERS Safety Report 19145409 (Version 2)
Quarter: 2021Q3

REPORT INFORMATION
  Report Type: Spontaneous
  Country: US (occurrence: US)
  Receive Date: 20210416
  Receipt Date: 20210719
  Transmission Date: 20211014
  Serious: No
  Sender: FDA-Public Use
  Company Number: US-BRISTOL-MYERS SQUIBB COMPANY-BMS-2021-034779

PATIENT
  Age: 85 Year
  Sex: Male
  Weight: 97.52 kg

DRUGS (1)
  1. OPDIVO [Suspect]
     Active Substance: NIVOLUMAB
     Indication: RENAL CELL CARCINOMA
     Dosage: UNK UNK, Q2WK
     Route: 042

REACTIONS (3)
  - Decreased appetite [Unknown]
  - Fatigue [Unknown]
  - Pruritus [Not Recovered/Not Resolved]
